FAERS Safety Report 10044612 (Version 1)
Quarter: 2014Q1

REPORT INFORMATION
  Report Type: Spontaneous
  Country: US (occurrence: US)
  Receive Date: 20140328
  Receipt Date: 20140328
  Transmission Date: 20141002
  Serious: Yes (Hospitalization)
  Sender: FDA-Public Use
  Company Number: US-LUNDBECK-DKLU1098507

PATIENT
  Sex: Female

DRUGS (4)
  1. SABRIL (TABLET) [Suspect]
     Indication: LENNOX-GASTAUT SYNDROME
     Dosage: TITRATE UP 500 MG EVERY WEEK UNTIL 3000 MG/DAY IS REACHED
     Route: 048
     Dates: start: 20140207
  2. SABRIL (TABLET) [Suspect]
     Route: 048
  3. TEGRETOL [Concomitant]
     Indication: PRODUCT USED FOR UNKNOWN INDICATION
  4. TOPAMAX [Concomitant]
     Indication: PRODUCT USED FOR UNKNOWN INDICATION

REACTIONS (2)
  - Convulsion [Unknown]
  - Dizziness [Unknown]
